FAERS Safety Report 23217122 (Version 3)
Quarter: 2023Q4

REPORT INFORMATION
  Report Type: Spontaneous
  Country: JP (occurrence: JP)
  Receive Date: 20231122
  Receipt Date: 20231228
  Transmission Date: 20240110
  Serious: Yes (Other)
  Sender: FDA-Public Use
  Company Number: JP-TAIHO-2023-009762

PATIENT
  Age: 47 Year
  Sex: Female
  Weight: 44 kg

DRUGS (9)
  1. ABRAXANE [Suspect]
     Active Substance: PACLITAXEL
     Indication: Invasive ductal breast carcinoma
     Dosage: 350 MG/DAY, DETAILS NOT REPORTED, WITH SUSPENSION DAILY DOSE: 350 MILLIGRAM(S)
     Route: 041
     Dates: start: 20230225
  2. ABRAXANE [Suspect]
     Active Substance: PACLITAXEL
     Dates: end: 20230415
  3. PEGFILGRASTIM [Suspect]
     Active Substance: PEGFILGRASTIM
     Indication: Prophylaxis
     Route: 058
     Dates: start: 20230227, end: 20230606
  4. LORATADINE [Concomitant]
     Active Substance: LORATADINE
     Indication: Bone pain
     Dosage: NI
     Route: 048
  5. EMEND [Concomitant]
     Active Substance: APREPITANT
     Indication: Product used for unknown indication
     Dosage: NI
  6. DECADRON [Concomitant]
     Active Substance: DEXAMETHASONE
     Indication: Product used for unknown indication
  7. SODIUM PICOSULFATE [Concomitant]
     Active Substance: SODIUM PICOSULFATE
     Indication: Product used for unknown indication
     Route: 048
  8. LOXOPROFEN SODIUM [Concomitant]
     Active Substance: LOXOPROFEN SODIUM
     Indication: Product used for unknown indication
     Route: 048
  9. DOMPERIDONE [Concomitant]
     Active Substance: DOMPERIDONE
     Indication: Product used for unknown indication
     Route: 048

REACTIONS (2)
  - Pain [Recovering/Resolving]
  - Neuropathy peripheral [Unknown]
